FAERS Safety Report 19727740 (Version 1)
Quarter: 2021Q3

REPORT INFORMATION
  Report Type: Spontaneous
  Country: BR (occurrence: BR)
  Receive Date: 20210819
  Receipt Date: 20210819
  Transmission Date: 20211014
  Serious: Yes (Hospitalization)
  Sender: FDA-Public Use
  Company Number: BR-AMGEN-BRASP2021127891

PATIENT
  Age: 42 Year
  Sex: Male
  Weight: 92.4 kg

DRUGS (1)
  1. ENBREL [Suspect]
     Active Substance: ETANERCEPT
     Indication: COVID-19
     Dosage: 25 MG, SINGLE
     Route: 058
     Dates: start: 20210515, end: 20210515

REACTIONS (3)
  - Pneumonia pseudomonal [Unknown]
  - Off label use [Unknown]
  - Urinary tract candidiasis [Unknown]

NARRATIVE: CASE EVENT DATE: 20210515
